FAERS Safety Report 6360340-6 (Version None)
Quarter: 2009Q3

REPORT INFORMATION
  Report Type: 
  Country: None (occurrence: None)
  Receive Date: 20090917
  Receipt Date: 20090908
  Transmission Date: 20100115
  Serious: Yes (Disabling, Other)
  Sender: FDA-Public Use
  Company Number: PHHY2008GB17777

PATIENT
  Sex: Male

DRUGS (3)
  1. CLOZARIL [Suspect]
     Indication: SCHIZOPHRENIA
     Dosage: 475 MG/DAY
     Route: 048
     Dates: start: 19950625
  2. CLOZARIL [Suspect]
     Dosage: 450 MG/DAY
     Route: 048
  3. CLOZARIL [Suspect]
     Dosage: 425 MG/ DAY

REACTIONS (4)
  - FALL [None]
  - MUSCLE SPASMS [None]
  - MUSCULAR WEAKNESS [None]
  - MYOCLONUS [None]
